FAERS Safety Report 4892453-X (Version None)
Quarter: 2006Q1

REPORT INFORMATION
  Report Type: 
  Country: None (occurrence: None)
  Receive Date: 20060125
  Receipt Date: 20060125
  Transmission Date: 20060701
  Serious: No
  Sender: FDA-Public Use
  Company Number: None

PATIENT
  Sex: Female

DRUGS (1)
  1. COGENTIN [Suspect]
     Indication: SCHIZOPHRENIA, PARANOID TYPE
     Dosage: ONE PO BID
     Route: 048

REACTIONS (3)
  - CONVULSION [None]
  - DISEASE RECURRENCE [None]
  - THERAPEUTIC RESPONSE UNEXPECTED WITH DRUG SUBSTITUTION [None]
